FAERS Safety Report 11116772 (Version 1)
Quarter: 2015Q2

REPORT INFORMATION
  Report Type: Spontaneous
  Country: US (occurrence: US)
  Receive Date: 20150515
  Receipt Date: 20150515
  Transmission Date: 20150821
  Serious: No
  Sender: FDA-Public Use
  Company Number: US-BAYER-2015-202098

PATIENT
  Age: 37 Year
  Sex: Female
  Weight: 63.3 kg

DRUGS (5)
  1. ZEGERID OTC CAPSULES [Suspect]
     Active Substance: OMEPRAZOLE\SODIUM BICARBONATE
     Indication: GASTROOESOPHAGEAL REFLUX DISEASE
     Dosage: 2 DF, BID
     Route: 048
     Dates: start: 201408, end: 201411
  2. IBUPROFEN [IBUPROFEN] [Concomitant]
     Active Substance: IBUPROFEN
  3. TRAMADOL [Concomitant]
     Active Substance: TRAMADOL
  4. VALIUM [Concomitant]
     Active Substance: DIAZEPAM
  5. ZEGERID OTC CAPSULES [Suspect]
     Active Substance: OMEPRAZOLE\SODIUM BICARBONATE
     Indication: GASTROOESOPHAGEAL REFLUX DISEASE
     Dosage: 2 DF, BID
     Route: 048
     Dates: start: 201504

REACTIONS (2)
  - Extra dose administered [Unknown]
  - Off label use [None]

NARRATIVE: CASE EVENT DATE: 201408
